FAERS Safety Report 20712739 (Version 1)
Quarter: 2022Q2

REPORT INFORMATION
  Report Type: Spontaneous
  Country: US (occurrence: US)
  Receive Date: 20220415
  Receipt Date: 20220415
  Transmission Date: 20220721
  Serious: No
  Sender: FDA-Public Use
  Company Number: US-TEVA-2022-US-2019484

PATIENT
  Sex: Female

DRUGS (4)
  1. LIDOCAINE [Suspect]
     Active Substance: LIDOCAINE
     Dosage: 8 PLUS YEARS
     Route: 062
  2. LIDOCAINE [Suspect]
     Active Substance: LIDOCAINE
  3. LIDOCAINE [Suspect]
     Active Substance: LIDOCAINE
     Dosage: APPROXIMATELY 3 YEARS AGO
     Route: 062
  4. LIDOCAINE [Suspect]
     Active Substance: LIDOCAINE

REACTIONS (2)
  - Rash [Recovered/Resolved]
  - Product adhesion issue [Unknown]

NARRATIVE: CASE EVENT DATE: 20220101
